FAERS Safety Report 9927928 (Version 1)
Quarter: 2014Q1

REPORT INFORMATION
  Report Type: Spontaneous
  Country: US (occurrence: US)
  Receive Date: 20140227
  Receipt Date: 20140227
  Transmission Date: 20141002
  Serious: No
  Sender: FDA-Public Use
  Company Number: US-PFIZER INC-2014052678

PATIENT
  Age: 56 Year
  Sex: Male
  Weight: 122 kg

DRUGS (3)
  1. LYRICA [Suspect]
     Indication: DIABETIC NEUROPATHY
     Dosage: 150 MG, 2X/DAY
  2. CADUET [Concomitant]
     Indication: HYPERTENSION
     Dosage: 5/40MG, 1X/DAY(5MG AMLODIPINE BESILATE / 40MG ATORVASTATIN CALCIUM)
  3. CADUET [Concomitant]
     Indication: BLOOD CHOLESTEROL INCREASED

REACTIONS (1)
  - Memory impairment [Unknown]
